FAERS Safety Report 5139190-4 (Version None)
Quarter: 2006Q4

REPORT INFORMATION
  Report Type: 
  Country: None (occurrence: None)
  Receive Date: 20061030
  Receipt Date: 20060710
  Transmission Date: 20070319
  Serious: No
  Sender: FDA-Public Use
  Company Number: US-GLAXOSMITHKLINE-A0611657A

PATIENT
  Age: 39 Year
  Sex: Female

DRUGS (11)
  1. ADVAIR HFA [Suspect]
     Indication: ASTHMA
     Dosage: 1PUFF TWICE PER DAY
     Route: 055
     Dates: start: 20060708
  2. PRANDIN [Concomitant]
  3. NOVOLIN [Concomitant]
  4. NEURONTIN [Concomitant]
  5. ACCUPRIL [Concomitant]
  6. LOPRESSOR [Concomitant]
  7. UNKNOWN MEDICATION [Concomitant]
  8. LASIX [Concomitant]
  9. ALBUTEROL [Concomitant]
  10. ALBUTEROL [Concomitant]
  11. RHINOCORT [Concomitant]

REACTIONS (2)
  - DRUG INEFFECTIVE [None]
  - DYSPNOEA [None]
